FAERS Safety Report 6527292-7 (Version None)
Quarter: 2010Q1

REPORT INFORMATION
  Report Type: 
  Country: None (occurrence: None)
  Receive Date: 20100105
  Receipt Date: 20090803
  Transmission Date: 20100710
  Serious: No
  Sender: FDA-Public Use
  Company Number: US-TYCO HEALTHCARE/MALLINCKRODT-T200901457

PATIENT
  Sex: Female
  Weight: 77.098 kg

DRUGS (1)
  1. OPTIMARK [Suspect]
     Dosage: 15 ML, SINGLE
     Route: 042
     Dates: start: 20090803, end: 20090803

REACTIONS (2)
  - DRUG ADMINISTRATION ERROR [None]
  - INJECTION SITE EXTRAVASATION [None]
